FAERS Safety Report 6787994-4 (Version None)
Quarter: 2010Q2

REPORT INFORMATION
  Report Type: 
  Country: None (occurrence: None)
  Receive Date: 20100623
  Receipt Date: 20071203
  Transmission Date: 20101027
  Serious: No
  Sender: FDA-Public Use
  Company Number: US-PFIZER INC-2007101792

PATIENT
  Sex: Female
  Weight: 69.09 kg

DRUGS (5)
  1. AROMASIN [Suspect]
     Indication: BREAST CANCER
     Dates: start: 20071101
  2. HYZAAR [Concomitant]
  3. ZETIA [Concomitant]
  4. PAXIL [Concomitant]
  5. VITAMINS [Concomitant]

REACTIONS (1)
  - DIARRHOEA [None]
